FAERS Safety Report 5710474-1 (Version None)
Quarter: 2008Q2

REPORT INFORMATION
  Report Type: 
  Country: None (occurrence: None)
  Receive Date: 20080418
  Receipt Date: 20080409
  Transmission Date: 20081010
  Serious: Yes (Hospitalization)
  Sender: FDA-Public Use
  Company Number: US-GENENTECH-259083

PATIENT
  Age: 5 Year
  Sex: Male
  Weight: 24.3 kg

DRUGS (7)
  1. SOMATROPIN [Suspect]
     Indication: SEPTO-OPTIC DYSPLASIA
     Dosage: 0.65 MG, 7/WEEK
     Route: 058
  2. SOMATROPIN [Suspect]
     Indication: GROWTH HORMONE DEFICIENCY
  3. CLONIDINE HCL [Concomitant]
     Indication: DRUG USE FOR UNKNOWN INDICATION
     Dosage: 0.1 MG, QD
     Route: 048
  4. LEVOTHYROXINE SODIUM [Concomitant]
     Indication: DRUG USE FOR UNKNOWN INDICATION
     Dosage: 37.5 MG, QD
     Route: 048
  5. MIRALAX [Concomitant]
     Indication: DRUG USE FOR UNKNOWN INDICATION
     Dosage: UNK, PRN
     Route: 048
  6. MELATONIN [Concomitant]
     Indication: DRUG USE FOR UNKNOWN INDICATION
  7. STEROIDS (UNK INGREDIENTS) [Concomitant]
     Indication: DRUG USE FOR UNKNOWN INDICATION
     Dosage: 7.5 MG, PRN
     Route: 048

REACTIONS (1)
  - GASTRITIS [None]
